FAERS Safety Report 19921474 (Version 1)
Quarter: 2021Q4

REPORT INFORMATION
  Report Type: Spontaneous
  Country: US (occurrence: US)
  Receive Date: 20211005
  Receipt Date: 20211005
  Transmission Date: 20220303
  Serious: Yes (Other)
  Sender: FDA-Public Use
  Company Number: 2021A750124

PATIENT
  Sex: Female

DRUGS (1)
  1. TAGRISSO [Suspect]
     Active Substance: OSIMERTINIB
     Route: 048

REACTIONS (5)
  - Renal failure [Unknown]
  - Malaise [Unknown]
  - Idiosyncratic drug reaction [Unknown]
  - Hepatic function abnormal [Unknown]
  - Blood creatinine increased [Unknown]
